FAERS Safety Report 5950886-4 (Version None)
Quarter: 2008Q4

REPORT INFORMATION
  Report Type: 
  Country: None (occurrence: None)
  Receive Date: 20081110
  Receipt Date: 20081024
  Transmission Date: 20090506
  Serious: Yes (Other)
  Sender: FDA-Public Use
  Company Number: 2008-02242

PATIENT
  Age: 67 Year
  Sex: Male

DRUGS (5)
  1. VELCADE [Suspect]
     Indication: MULTIPLE MYELOMA
     Dosage: 2.6 MG, INTRAVENOUS
     Route: 042
     Dates: start: 20080212, end: 20080425
  2. DEXAMETHASONE 0.5MG TAB [Concomitant]
  3. ALLOPURINOL [Concomitant]
  4. ACETYLSALICYLIC ACID SRT [Concomitant]
  5. ZOLEDRONIC ACID [Concomitant]

REACTIONS (1)
  - DRUG INEFFECTIVE [None]
